FAERS Safety Report 25202071 (Version 2)
Quarter: 2025Q2

REPORT INFORMATION
  Report Type: Spontaneous
  Country: JP (occurrence: JP)
  Receive Date: 20250416
  Receipt Date: 20250424
  Transmission Date: 20250716
  Serious: Yes (Death, Other)
  Sender: RANBAXY
  Company Number: JP-SUN PHARMACEUTICAL INDUSTRIES LTD-2025R1-498245

PATIENT
  Age: 70 Year
  Sex: Male
  Weight: 73.8 kg

DRUGS (2)
  1. GEMCITABINE [Suspect]
     Active Substance: GEMCITABINE
     Indication: Bladder cancer
     Route: 042
     Dates: start: 20150223, end: 20150419
  2. CISPLATIN [Suspect]
     Active Substance: CISPLATIN
     Indication: Bladder cancer
     Route: 042
     Dates: start: 20150223, end: 20150419

REACTIONS (6)
  - Myelodysplastic syndrome [Fatal]
  - Thrombocytopenia [Recovered/Resolved]
  - Therapeutic response decreased [Unknown]
  - Anaemia [Recovered/Resolved]
  - Metastases to lung [Unknown]
  - Metastases to lymph nodes [Unknown]

NARRATIVE: CASE EVENT DATE: 20230127
